FAERS Safety Report 24292923 (Version 2)
Quarter: 2024Q3

REPORT INFORMATION
  Report Type: Spontaneous
  Country: ZA (occurrence: ZA)
  Receive Date: 20240906
  Receipt Date: 20240917
  Transmission Date: 20241017
  Serious: Yes (Other)
  Sender: NOVARTIS
  Company Number: ZA-002147023-NVSC2024ZA178497

PATIENT
  Age: 42 Year
  Sex: Female

DRUGS (2)
  1. COSENTYX [Suspect]
     Active Substance: SECUKINUMAB
     Indication: Psoriatic arthropathy
     Dosage: 150 MG, QMO (ALTERNATIVE WEEKS (WEEK 0,1,2,3,4), THEN MONTHLY)
     Route: 058
     Dates: start: 20240807
  2. HYDROXYCHLOROQUINE [Concomitant]
     Active Substance: HYDROXYCHLOROQUINE
     Indication: Product used for unknown indication
     Dosage: 200 MG (5 TIMES PER WEEK)
     Route: 065
     Dates: start: 19970101

REACTIONS (1)
  - C-reactive protein increased [Not Recovered/Not Resolved]

NARRATIVE: CASE EVENT DATE: 20240807
